FAERS Safety Report 6941674-0 (Version None)
Quarter: 2010Q3

REPORT INFORMATION
  Report Type: 
  Country: None (occurrence: None)
  Receive Date: 20100826
  Receipt Date: 20100824
  Transmission Date: 20110219
  Serious: Yes (Other)
  Sender: FDA-Public Use
  Company Number: US-ASTRAZENECA-2007UW12092

PATIENT
  Age: 19735 Day
  Sex: Female
  Weight: 63.5 kg

DRUGS (14)
  1. SEROQUEL [Suspect]
     Indication: DEPRESSION
     Route: 048
     Dates: start: 20020501, end: 20060501
  2. SEROQUEL [Suspect]
     Indication: POST-TRAUMATIC STRESS DISORDER
     Route: 048
     Dates: start: 20020501, end: 20060501
  3. SEROQUEL [Suspect]
     Dosage: 50-100 MG
     Route: 048
     Dates: start: 20020625
  4. SEROQUEL [Suspect]
     Dosage: 50-100 MG
     Route: 048
     Dates: start: 20020625
  5. SEROQUEL [Suspect]
     Route: 048
     Dates: start: 20020701, end: 20060517
  6. SEROQUEL [Suspect]
     Route: 048
     Dates: start: 20020701, end: 20060517
  7. PREVACID [Concomitant]
     Route: 048
     Dates: start: 20040309
  8. LIPITOR [Concomitant]
     Dosage: 20-40 MG
     Route: 048
     Dates: start: 20040309
  9. PAXIL [Concomitant]
     Dosage: 20-60 MG
     Route: 048
     Dates: start: 20040312
  10. GLUCOPHAGE [Concomitant]
     Route: 048
     Dates: start: 20050627
  11. TOPAMAX [Concomitant]
     Route: 048
     Dates: start: 20040312
  12. TOPAMAX [Concomitant]
  13. KLONOPIN [Concomitant]
     Route: 048
     Dates: start: 20040312
  14. KLONOPIN [Concomitant]

REACTIONS (4)
  - DIABETES MELLITUS [None]
  - DIABETIC NEUROPATHY [None]
  - OBESITY [None]
  - TYPE 2 DIABETES MELLITUS [None]
